FAERS Safety Report 24277247 (Version 1)
Quarter: 2024Q3

REPORT INFORMATION
  Report Type: Spontaneous
  Country: FR (occurrence: FR)
  Receive Date: 20240903
  Receipt Date: 20240903
  Transmission Date: 20241017
  Serious: Yes (Hospitalization)
  Sender: MYLAN
  Company Number: None

PATIENT
  Sex: Female
  Weight: 3.43 kg

DRUGS (3)
  1. SERTRALINE [Suspect]
     Active Substance: SERTRALINE HYDROCHLORIDE
     Indication: Product used for unknown indication
     Dosage: 25 MILLIGRAM, QD
     Route: 064
     Dates: start: 20240708, end: 20240725
  2. SERTRALINE [Suspect]
     Active Substance: SERTRALINE HYDROCHLORIDE
     Dosage: 50 MILLIGRAM, QD (INCREASED)
     Route: 064
     Dates: start: 20240713
  3. CYMBALTA [Concomitant]
     Active Substance: DULOXETINE HYDROCHLORIDE
     Dosage: 60 MG/D UNTIL 08-JUL, REDUCED TO 30 MG/D THEN STOPPED ON 13-JUL
     Route: 064
     Dates: start: 20231205, end: 20240713

REACTIONS (4)
  - Immature respiratory system [Recovering/Resolving]
  - Premature baby [Recovering/Resolving]
  - Neonatal hypoxia [Recovering/Resolving]
  - Foetal exposure during pregnancy [Unknown]

NARRATIVE: CASE EVENT DATE: 20240725
